FAERS Safety Report 4596403-5 (Version None)
Quarter: 2005Q1

REPORT INFORMATION
  Report Type: 
  Country: None (occurrence: None)
  Receive Date: 20050228
  Receipt Date: 20050215
  Transmission Date: 20050727
  Serious: Yes (Other)
  Sender: FDA-Public Use
  Company Number: 2005027210

PATIENT
  Age: 61 Year
  Sex: Male
  Weight: 105 kg

DRUGS (5)
  1. NEURONTIN [Suspect]
     Indication: CANCER PAIN
     Dosage: 900 MG (300 MG, 3 IN 1 D); ORAL
     Route: 048
     Dates: start: 20050204
  2. OXYCODONE (OXYCODONE) [Suspect]
     Indication: CANCER PAIN
     Dosage: 80 MG (40 MG, 2 IN 1 D); ORAL
     Route: 048
  3. SIMVASTATIN [Concomitant]
  4. ATENOLOL [Concomitant]
  5. ACETYLSALICYLIC ACID SRT [Concomitant]

REACTIONS (3)
  - DRUG INTERACTION [None]
  - HALLUCINATION, VISUAL [None]
  - SLEEP DISORDER [None]
